FAERS Safety Report 19969210 (Version 1)
Quarter: 2021Q4

REPORT INFORMATION
  Report Type: Spontaneous
  Country: US (occurrence: US)
  Receive Date: 20211019
  Receipt Date: 20211019
  Transmission Date: 20220303
  Serious: No
  Sender: FDA-Public Use
  Company Number: US-PFIZER INC-202101168263

PATIENT
  Age: 64 Year
  Sex: Female

DRUGS (9)
  1. INLYTA [Suspect]
     Active Substance: AXITINIB
     Indication: Illness
     Dosage: 5 MG, 2X/DAY
     Route: 048
  2. KEYTRUDA [Concomitant]
     Active Substance: PEMBROLIZUMAB
     Dosage: UNK
  3. LEVOTHYROXINE [Concomitant]
     Active Substance: LEVOTHYROXINE
     Dosage: 100 UG
  4. CEPHALEXIN [Concomitant]
     Active Substance: CEPHALEXIN
     Dosage: 250 MG
  5. PREDNISONE [Concomitant]
     Active Substance: PREDNISONE
     Dosage: 10 MG
  6. VITAMIN B COMPLEX [Concomitant]
     Active Substance: CYANOCOBALAMIN\DEXPANTHENOL\NIACINAMIDE\PYRIDOXINE HYDROCHLORIDE\RIBOFLAVIN 5^-PHOSPHATE SODIUM\THIA
     Dosage: 0.4 MG
  7. VITAMIN B12 [Concomitant]
     Active Substance: CYANOCOBALAMIN
     Dosage: 1000 UG
  8. VITAMIN D3 [Concomitant]
     Active Substance: CHOLECALCIFEROL
     Dosage: 10 UG
  9. AMLODIPINE BESYLATE [Concomitant]
     Active Substance: AMLODIPINE BESYLATE
     Dosage: 2.5 MG

REACTIONS (13)
  - Illness [Unknown]
  - Immune system disorder [Unknown]
  - Weight decreased [Unknown]
  - Diarrhoea [Unknown]
  - Urinary tract infection [Unknown]
  - Aphasia [Unknown]
  - Headache [Unknown]
  - Dehydration [Unknown]
  - Blood potassium decreased [Unknown]
  - Alopecia [Unknown]
  - Gait disturbance [Unknown]
  - Asthenia [Unknown]
  - Anxiety [Unknown]

NARRATIVE: CASE EVENT DATE: 20210801
